FAERS Safety Report 7162293-X (Version None)
Quarter: 2010Q4

REPORT INFORMATION
  Report Type: 
  Country: None (occurrence: None)
  Receive Date: 20101215
  Receipt Date: 20101213
  Transmission Date: 20110411
  Serious: Yes (Death, Hospitalization)
  Sender: FDA-Public Use
  Company Number: ID-ROCHE-746250

PATIENT
  Age: 33 Month
  Sex: Male

DRUGS (9)
  1. OSELTAMIVIR [Suspect]
     Indication: AVIAN INFLUENZA
     Route: 065
     Dates: start: 20090320, end: 20090326
  2. CEFOTAXIM [Concomitant]
     Dosage: DRUG REPORTED AS CEFOTAXIN
     Dates: start: 20090314, end: 20090320
  3. GENTAMICIN [Concomitant]
     Dates: start: 20090318
  4. METRONIDAZOLE [Concomitant]
     Dates: start: 20090320
  5. MEROPENEM [Concomitant]
     Dates: start: 20090320
  6. PARACETAMOL [Concomitant]
     Dosage: DRUG REPORTED AS PARACETAMOL/ ACETAMINOPHEN
     Dates: start: 20090320, end: 20090326
  7. RANITIDINE HCL [Concomitant]
     Dates: start: 20090320
  8. VENTOLIN [Concomitant]
     Dates: start: 20090320
  9. TPN ELECTROLYTES IN PLASTIC CONTAINER [Concomitant]
     Dates: start: 20090320

REACTIONS (3)
  - INFLUENZA [None]
  - PNEUMONIA [None]
  - RESPIRATORY FAILURE [None]
